FAERS Safety Report 13597565 (Version 4)
Quarter: 2020Q1

REPORT INFORMATION
  Report Type: Spontaneous
  Country: IT (occurrence: IT)
  Receive Date: 20170531
  Receipt Date: 20200324
  Transmission Date: 20200409
  Serious: Yes (Hospitalization, Other)
  Sender: FDA-Public Use
  Company Number: PHHY2017IT074760

PATIENT
  Age: 72 Year
  Sex: Female
  Weight: 76 kg

DRUGS (20)
  1. DOCETAXEL SANDOZ [Suspect]
     Active Substance: DOCETAXEL
     Dosage: 20 UNK
     Route: 048
     Dates: start: 20170601
  2. DEXAMETHASONE. [Suspect]
     Active Substance: DEXAMETHASONE
     Indication: PRODUCT USED FOR UNKNOWN INDICATION
     Dosage: 16 MG, UNK
     Route: 042
     Dates: start: 20170111, end: 20170324
  3. ARIXTRA [Concomitant]
     Active Substance: FONDAPARINUX SODIUM
     Indication: PRODUCT USED FOR UNKNOWN INDICATION
     Route: 065
  4. LUCEN [Concomitant]
     Active Substance: ESOMEPRAZOLE
     Indication: PRODUCT USED FOR UNKNOWN INDICATION
     Route: 065
  5. DEXAMETHASONE. [Suspect]
     Active Substance: DEXAMETHASONE
     Dosage: 20 UNK
     Route: 048
     Dates: start: 20171216
  6. POMALIDOMIDE [Suspect]
     Active Substance: POMALIDOMIDE
     Dosage: 4 MG, QD
     Route: 048
     Dates: start: 20171209, end: 20171229
  7. DEXAMETHASONE. [Suspect]
     Active Substance: DEXAMETHASONE
     Dosage: 20 UNK
     Route: 048
     Dates: start: 20170525
  8. DEXAMETHASONE. [Suspect]
     Active Substance: DEXAMETHASONE
     Dosage: 20 UNK
     Route: 048
     Dates: start: 20170608
  9. DEXAMETHASONE. [Suspect]
     Active Substance: DEXAMETHASONE
     Dosage: 20 UNK
     Route: 048
     Dates: start: 20171223
  10. DEXAMETHASONE. [Suspect]
     Active Substance: DEXAMETHASONE
     Dosage: 20 UNK
     Route: 048
     Dates: start: 20171230
  11. HERCEPTIN [Suspect]
     Active Substance: TRASTUZUMAB
     Indication: BREAST CANCER
     Dosage: 474 MG, CYCLIC
     Route: 042
     Dates: start: 20170112, end: 20170322
  12. DOCETAXEL SANDOZ [Suspect]
     Active Substance: DOCETAXEL
     Indication: BREAST CANCER
     Dosage: 100 MG, CYCLIC
     Route: 042
     Dates: start: 20170112, end: 20170322
  13. POMALIDOMIDE [Suspect]
     Active Substance: POMALIDOMIDE
     Indication: PLASMA CELL MYELOMA
     Dosage: UNK
     Route: 048
     Dates: start: 20170518, end: 20170607
  14. FILGRASTIM [Concomitant]
     Active Substance: FILGRASTIM
     Indication: PROPHYLAXIS
     Route: 065
     Dates: start: 20170112, end: 20170322
  15. BISOPROLOL [Concomitant]
     Active Substance: BISOPROLOL
     Indication: PRODUCT USED FOR UNKNOWN INDICATION
     Route: 065
  16. DEXAMETHASONE. [Suspect]
     Active Substance: DEXAMETHASONE
     Dosage: 20 UNK
     Route: 048
     Dates: start: 20170518
  17. DEXAMETHASONE. [Suspect]
     Active Substance: DEXAMETHASONE
     Dosage: 20 UNK
     Route: 048
     Dates: start: 20171209
  18. CARBOPLATINO AHCL [Suspect]
     Active Substance: CARBOPLATIN
     Indication: BREAST CANCER
     Dosage: 629.9 MG, CYCLIC
     Route: 042
     Dates: start: 20170112, end: 20170322
  19. DEXAMETHASONE. [Suspect]
     Active Substance: DEXAMETHASONE
     Dosage: 20 UNK
     Route: 048
     Dates: start: 20170607
  20. ONDANSETRON HIKMA [Concomitant]
     Active Substance: ONDANSETRON
     Indication: PRODUCT USED FOR UNKNOWN INDICATION
     Dosage: 8 MG, UNK
     Route: 042

REACTIONS (17)
  - Bone marrow failure [Unknown]
  - Atrial fibrillation [Unknown]
  - Thrombocytopenia [Recovered/Resolved with Sequelae]
  - Neurotoxicity [Unknown]
  - Neutropenia [Recovered/Resolved]
  - Cardiac failure [Unknown]
  - Staphylococcal sepsis [Recovered/Resolved with Sequelae]
  - Pruritus [Unknown]
  - Paronychia [Unknown]
  - Hypokalaemic syndrome [Recovered/Resolved with Sequelae]
  - Neutropenia [Recovered/Resolved with Sequelae]
  - Oedema [Unknown]
  - Corneal bleeding [Unknown]
  - Erythema [Unknown]
  - Skin discolouration [Unknown]
  - Anaemia [Recovered/Resolved with Sequelae]
  - Leukopenia [Unknown]

NARRATIVE: CASE EVENT DATE: 20170331
